FAERS Safety Report 9408225 (Version 1)
Quarter: 2013Q3

REPORT INFORMATION
  Report Type: Spontaneous
  Country: US (occurrence: US)
  Receive Date: 20130718
  Receipt Date: 20130718
  Transmission Date: 20140515
  Serious: Yes (Death)
  Sender: FDA-Public Use
  Company Number: US-GLAXOSMITHKLINE-A0806129A

PATIENT
  Age: 58 Year
  Sex: Male
  Weight: 140 kg

DRUGS (1)
  1. AVANDIA [Suspect]
     Indication: DIABETES MELLITUS
     Route: 048
     Dates: start: 20041028

REACTIONS (2)
  - Myocardial infarction [Fatal]
  - Cardiac failure congestive [Unknown]
